FAERS Safety Report 10080850 (Version 1)
Quarter: 2014Q2

REPORT INFORMATION
  Report Type: Spontaneous
  Country: IT (occurrence: IT)
  Receive Date: 20140416
  Receipt Date: 20140416
  Transmission Date: 20141212
  Serious: Yes (Life-Threatening)
  Sender: FDA-Public Use
  Company Number: IT-TEVA-473324ISR

PATIENT
  Age: 64 Year
  Sex: Male
  Weight: 110 kg

DRUGS (8)
  1. RAMIPRIL [Suspect]
     Indication: MYOCARDIAL ISCHAEMIA
     Dates: start: 20130701, end: 20140206
  2. FUROSEMIDE [Interacting]
     Indication: MYOCARDIAL ISCHAEMIA
     Dosage: 1 DOSAGE FORMS DAILY;
     Dates: start: 20130701, end: 20140206
  3. METFORMIN [Interacting]
     Indication: DIABETES MELLITUS
     Dosage: 2 GRAM DAILY;
     Route: 048
     Dates: start: 20130110, end: 20140206
  4. COMPETACT - TAKEDA PHARMA A/S [Interacting]
     Indication: DIABETES MELLITUS
     Dosage: 2 DOSAGE FORMS DAILY;
     Route: 048
     Dates: start: 20130701, end: 20140206
  5. DILATREND [Concomitant]
     Indication: PRODUCT USED FOR UNKNOWN INDICATION
     Route: 048
     Dates: start: 20130701, end: 20140206
  6. CARDIOASPIRIN [Concomitant]
     Indication: PRODUCT USED FOR UNKNOWN INDICATION
     Dosage: 1 DOSAGE FORMS DAILY;
     Route: 048
     Dates: start: 20130701, end: 20140206
  7. LEVEMIR - 100 U/ML SOLUZIONE INIETTABILE [Concomitant]
     Indication: PRODUCT USED FOR UNKNOWN INDICATION
     Dosage: 20IU
     Route: 058
  8. SIVASTIN - 10 MG COMPRESSE RIVESTITE CON FILM [Concomitant]
     Indication: PRODUCT USED FOR UNKNOWN INDICATION
     Dosage: 1 DF
     Dates: start: 20130701, end: 20140206

REACTIONS (3)
  - Lactic acidosis [Recovering/Resolving]
  - Renal failure acute [Recovering/Resolving]
  - Drug interaction [Unknown]
